FAERS Safety Report 7302510-6 (Version None)
Quarter: 2011Q1

REPORT INFORMATION
  Report Type: 
  Country: None (occurrence: None)
  Receive Date: 20110218
  Receipt Date: 20110208
  Transmission Date: 20110831
  Serious: Yes (Hospitalization, Other)
  Sender: FDA-Public Use
  Company Number: US-ELI_LILLY_AND_COMPANY-US201102002096

PATIENT
  Sex: Female
  Weight: 90.703 kg

DRUGS (10)
  1. SOMA [Concomitant]
  2. BYETTA [Suspect]
     Dosage: 10 UG, 2/D
     Route: 058
  3. BYSTOLIC [Concomitant]
     Dosage: UNK, DAILY (1/D)
  4. LEVEMIR [Concomitant]
     Dosage: UNK, 2/D
  5. PHENERGAN [Concomitant]
     Dosage: UNK, DAILY (1/D)
  6. BYETTA [Suspect]
     Indication: TYPE 2 DIABETES MELLITUS
     Dosage: 5 UG, 2/D
     Route: 058
  7. LISINOPRIL [Concomitant]
     Dosage: UNK, DAILY (1/D)
  8. POTASSIUM [Concomitant]
     Dosage: UNK, DAILY (1/D)
  9. GABAPENTIN [Concomitant]
     Dosage: 600 MG, 3/D
  10. LOVASTATIN [Concomitant]
     Dosage: UNK, DAILY (1/D)

REACTIONS (10)
  - PAIN IN EXTREMITY [None]
  - VOMITING [None]
  - PYREXIA [None]
  - CHILLS [None]
  - CONSCIOUSNESS FLUCTUATING [None]
  - WHITE BLOOD CELL COUNT DECREASED [None]
  - FEELING ABNORMAL [None]
  - BACK PAIN [None]
  - DECREASED APPETITE [None]
  - ABDOMINAL PAIN UPPER [None]
